FAERS Safety Report 12199128 (Version 3)
Quarter: 2016Q2

REPORT INFORMATION
  Report Type: Spontaneous
  Country: IT (occurrence: IT)
  Receive Date: 20160322
  Receipt Date: 20160404
  Transmission Date: 20160815
  Serious: Yes (Other)
  Sender: FDA-Public Use
  Company Number: IT-ROCHE-1729574

PATIENT
  Age: 71 Year
  Sex: Male

DRUGS (12)
  1. LASIX [Concomitant]
     Active Substance: FUROSEMIDE
  2. DELTACORTENE [Concomitant]
     Active Substance: PREDNISONE
  3. DEURSIL [Concomitant]
     Active Substance: URSODIOL
  4. OLYSIO [Suspect]
     Active Substance: SIMEPREVIR
     Indication: CHRONIC HEPATITIS C
     Route: 048
     Dates: start: 20151112, end: 20160222
  5. SOVALDI [Suspect]
     Active Substance: SOFOSBUVIR
     Indication: CHRONIC HEPATITIS C
     Route: 048
     Dates: start: 20151112, end: 20160222
  6. RIBAVIRIN. [Suspect]
     Active Substance: RIBAVIRIN
     Indication: CHRONIC HEPATITIS C
     Route: 048
     Dates: start: 20151112, end: 20160222
  7. AMOXICILLIN. [Concomitant]
     Active Substance: AMOXICILLIN
  8. ZEFFIX [Concomitant]
     Active Substance: LAMIVUDINE
  9. ZESTRIL [Concomitant]
     Active Substance: LISINOPRIL
  10. SIROLIMUS. [Concomitant]
     Active Substance: SIROLIMUS
  11. LIMPIDEX [Concomitant]
     Active Substance: LANSOPRAZOLE
  12. DIDROGYL [Concomitant]
     Active Substance: CALCIFEDIOL

REACTIONS (1)
  - Macroglossia [Recovered/Resolved]

NARRATIVE: CASE EVENT DATE: 20160222
